FAERS Safety Report 12379038 (Version 2)
Quarter: 2016Q2

REPORT INFORMATION
  Report Type: Spontaneous
  Country: DE (occurrence: DE)
  Receive Date: 20160517
  Receipt Date: 20160526
  Transmission Date: 20160815
  Serious: Yes (Death, Hospitalization, Other)
  Sender: FDA-Public Use
  Company Number: US-ASTRAZENECA-2016SE52551

PATIENT
  Age: 169 Day
  Sex: Male
  Weight: 9.4 kg

DRUGS (2)
  1. SYNAGIS [Suspect]
     Active Substance: PALIVIZUMAB
     Indication: HEART DISEASE CONGENITAL
     Dosage: 15MG/KG BODYWEIGHT 100MG + 50MG MONTHLY
     Route: 030
     Dates: start: 201510, end: 20160317
  2. SYNAGIS [Suspect]
     Active Substance: PALIVIZUMAB
     Indication: ANTIVIRAL PROPHYLAXIS
     Dosage: 15MG/KG BODYWEIGHT 100MG + 50MG MONTHLY
     Route: 030
     Dates: start: 201510, end: 20160317

REACTIONS (4)
  - Ileus paralytic [Unknown]
  - Multiple organ dysfunction syndrome [Fatal]
  - Multimorbidity [Fatal]
  - Adenovirus infection [Unknown]

NARRATIVE: CASE EVENT DATE: 20151021
